FAERS Safety Report 5481599-3 (Version None)
Quarter: 2007Q4

REPORT INFORMATION
  Report Type: 
  Country: None (occurrence: None)
  Receive Date: 20071004
  Receipt Date: 20070912
  Transmission Date: 20080405
  Serious: Yes (Hospitalization)
  Sender: FDA-Public Use
  Company Number: 070904118

PATIENT
  Age: 77 Year
  Sex: Male

DRUGS (6)
  1. MUCINEX (600 MG GUAIFENESIN) [Suspect]
     Indication: SINUSITIS
     Dosage: 1TABL, BID, ORAL
     Route: 048
     Dates: start: 20070906, end: 20070911
  2. PLAVIX [Concomitant]
  3. ASPIRIN [Concomitant]
  4. SINGULAIR [Concomitant]
  5. FLONASE [Concomitant]
  6. ASTELIN [Concomitant]

REACTIONS (5)
  - BLOOD DISORDER [None]
  - DIARRHOEA [None]
  - DIZZINESS [None]
  - HYPOXIA [None]
  - LOSS OF CONSCIOUSNESS [None]
